FAERS Safety Report 6925404-4 (Version None)
Quarter: 2010Q3

REPORT INFORMATION
  Report Type: 
  Country: None (occurrence: None)
  Receive Date: 20100813
  Receipt Date: 20100813
  Transmission Date: 20110219
  Serious: Yes (Other)
  Sender: FDA-Public Use
  Company Number: None

PATIENT
  Age: 53 Year
  Sex: Male
  Weight: 89.5401 kg

DRUGS (2)
  1. RITUXAN [Suspect]
     Indication: NON-HODGKIN'S LYMPHOMA
     Dosage: 799MG Q 3WKS IV
     Route: 042
     Dates: start: 20100811
  2. RITUXAN [Suspect]

REACTIONS (3)
  - FEELING COLD [None]
  - INFUSION RELATED REACTION [None]
  - TREMOR [None]
